FAERS Safety Report 4627243-6 (Version None)
Quarter: 2005Q1

REPORT INFORMATION
  Report Type: 
  Country: None (occurrence: None)
  Receive Date: 20050331
  Receipt Date: 20050322
  Transmission Date: 20050727
  Serious: Yes (Disabling)
  Sender: FDA-Public Use
  Company Number: 211668

PATIENT
  Age: 9 Year
  Sex: Female
  Weight: 35 kg

DRUGS (8)
  1. XOLAIR [Suspect]
     Indication: ASTHMA
     Dosage: 300 Q2W; 300 MG, 1/MONTH; 150 MG, 1/MONTH
     Dates: start: 20031021
  2. XOLAIR [Suspect]
     Indication: ASTHMA
     Dosage: 300 Q2W; 300 MG, 1/MONTH; 150 MG, 1/MONTH
     Dates: start: 20050101
  3. ADVAIR (FLUTICASONE PROPIONATE, SALMETEROL XINAFOATE) [Concomitant]
  4. SINGULAIR [Concomitant]
  5. ALBUTEROL (ALBUTEROL, ALBUTEROL SULFATE) [Concomitant]
  6. ZYRTEC (CITIRIZINE HYDROCHLORIDE) [Concomitant]
  7. SPIRIVA [Concomitant]
  8. ASTELIN (AZELASTINE HYDROCHLORIDE) PWDR + SOLVENT, INFUSION SOLN [Concomitant]

REACTIONS (2)
  - HEADACHE [None]
  - MYALGIA [None]
